FAERS Safety Report 4438410-9 (Version None)
Quarter: 2004Q3

REPORT INFORMATION
  Report Type: 
  Country: None (occurrence: None)
  Receive Date: 20040831
  Receipt Date: 20040816
  Transmission Date: 20050211
  Serious: Yes (Life-Threatening, Hospitalization)
  Sender: FDA-Public Use
  Company Number: GB-BRISTOL-MYERS SQUIBB COMPANY-12687679

PATIENT
  Age: 83 Year
  Sex: Female

DRUGS (3)
  1. GLUCOPHAGE [Suspect]
     Route: 048
  2. FRUSEMIDE [Concomitant]
  3. AMILORIDE [Concomitant]

REACTIONS (4)
  - ACUTE RESPIRATORY FAILURE [None]
  - LACTIC ACIDOSIS [None]
  - METASTASES TO LIVER [None]
  - RENAL FAILURE ACUTE [None]
